FAERS Safety Report 4775686-2 (Version None)
Quarter: 2005Q3

REPORT INFORMATION
  Report Type: 
  Country: None (occurrence: None)
  Receive Date: 20050921
  Receipt Date: 20050908
  Transmission Date: 20060218
  Serious: Yes (Other)
  Sender: FDA-Public Use
  Company Number: 2005125830

PATIENT
  Age: 17 Year
  Sex: Male
  Weight: 81.6475 kg

DRUGS (1)
  1. DRAMAMINE [Suspect]
     Indication: EUPHORIC MOOD
     Dosage: A WHOLE BOTTLE ^FOR SURE^ 3
     Dates: start: 20050101

REACTIONS (4)
  - AGGRESSION [None]
  - INTENTIONAL MISUSE [None]
  - LOSS OF CONSCIOUSNESS [None]
  - MUTISM [None]
